FAERS Safety Report 5710472-8 (Version None)
Quarter: 2008Q2

REPORT INFORMATION
  Report Type: 
  Country: None (occurrence: None)
  Receive Date: 20080418
  Receipt Date: 20080409
  Transmission Date: 20081010
  Serious: Yes (Hospitalization, Other)
  Sender: FDA-Public Use
  Company Number: CH-ABBOTT-08P-151-0438724-00

PATIENT
  Age: 84 Year
  Sex: Female
  Weight: 50 kg

DRUGS (18)
  1. CYCLOSPORINE [Suspect]
     Indication: DRUG USE FOR UNKNOWN INDICATION
     Route: 048
     Dates: start: 19950101
  2. CYCLOSPORINE [Suspect]
     Route: 048
     Dates: start: 20070326, end: 20070326
  3. CYCLOSPORINE [Suspect]
     Dosage: NOT REPORTED
  4. CYCLOSPORINE [Suspect]
  5. CIPRALEX FILM-COATED TABLETS [Suspect]
     Indication: DEPRESSION
     Dosage: INITIAL DOSE 2.5 MG/D, GRADUALLY INCREASED TO 15 MG/D
     Dates: start: 20061001, end: 20070326
  6. CIPRALEX FILM-COATED TABLETS [Suspect]
     Indication: COGNITIVE DISORDER
     Dosage: NOT REPORTED
     Dates: start: 20070405, end: 20070406
  7. CIPRALEX FILM-COATED TABLETS [Suspect]
     Dates: start: 20070406
  8. CIPRALEX FILM-COATED TABLETS [Suspect]
  9. AZATHIOPRINE [Concomitant]
     Indication: IMMUNOSUPPRESSION
     Route: 048
  10. PARACETAMOL [Concomitant]
     Indication: DRUG USE FOR UNKNOWN INDICATION
     Route: 042
  11. MEMANTINE HCL [Concomitant]
     Indication: DRUG USE FOR UNKNOWN INDICATION
  12. MEMANTINE HCL [Concomitant]
  13. HALOPERIDOL [Concomitant]
     Indication: RESTLESSNESS
     Route: 048
  14. HALOPERIDOL [Concomitant]
     Indication: AGITATION
  15. LORAZEPAM [Concomitant]
     Indication: DRUG USE FOR UNKNOWN INDICATION
     Route: 048
     Dates: start: 20060101, end: 20070402
  16. CALCITRIOL [Concomitant]
     Indication: DRUG USE FOR UNKNOWN INDICATION
     Route: 048
  17. CALCIUM-SANDOZ [Concomitant]
     Indication: DRUG USE FOR UNKNOWN INDICATION
     Route: 048
  18. CEFUROXIME AXETIL [Concomitant]
     Indication: URINARY TRACT INFECTION
     Dosage: NOT REPORTED
     Dates: start: 20070309, end: 20070319

REACTIONS (1)
  - SEROTONIN SYNDROME [None]
